FAERS Safety Report 6280197-1 (Version None)
Quarter: 2009Q3

REPORT INFORMATION
  Report Type: 
  Country: None (occurrence: None)
  Receive Date: 20090723
  Receipt Date: 20090713
  Transmission Date: 20100115
  Serious: Yes (Other)
  Sender: FDA-Public Use
  Company Number: FI-SANOFI-SYNTHELABO-F01200900672

PATIENT
  Sex: Female

DRUGS (7)
  1. PENDYSIN [Concomitant]
  2. DIUREX [Concomitant]
  3. MAREVAN [Concomitant]
  4. KETORIN [Concomitant]
  5. ACETAMINOPHEN [Concomitant]
  6. CAPECITABINE [Suspect]
     Route: 048
     Dates: start: 20081117, end: 20090427
  7. OXALIPLATIN [Suspect]
     Indication: RECTAL CANCER
     Route: 042

REACTIONS (3)
  - LEUKOPENIA [None]
  - NEUTROPENIA [None]
  - PALMAR-PLANTAR ERYTHRODYSAESTHESIA SYNDROME [None]
